FAERS Safety Report 8410198-6 (Version None)
Quarter: 2012Q2

REPORT INFORMATION
  Report Type: 
  Country: None (occurrence: None)
  Receive Date: 20120605
  Receipt Date: 20120530
  Transmission Date: 20120825
  Serious: Yes (Hospitalization, Other)
  Sender: FDA-Public Use
  Company Number: PHHY2012BR047230

PATIENT
  Sex: Female
  Weight: 60 kg

DRUGS (8)
  1. BISOPROLOL FUMARATE [Concomitant]
     Indication: CARDIAC DISORDER
     Dosage: 2.5 MG, QD
  2. METFORMIN HYDROCHLORIDE [Concomitant]
     Dosage: 500 MG, QHS
  3. VENLAFAXINE HYDROCHLORIDE [Concomitant]
     Indication: NERVOUS SYSTEM DISORDER
     Dosage: 75 MG, QD
  4. LOSARTAN POTASSIUM [Concomitant]
     Dosage: 50 MG, Q12H
  5. PLAVIX [Concomitant]
     Dosage: 65 MG, QD
  6. SOMALGIN [Concomitant]
     Indication: COAGULOPATHY
     Dosage: 1 DF, QD
  7. EXELON [Suspect]
     Indication: DEMENTIA ALZHEIMER'S TYPE
     Dosage: 4.6 MG, QD
     Route: 062
  8. EXELON [Suspect]
     Dosage: 9.5 MG, QD
     Route: 062

REACTIONS (6)
  - SUFFOCATION FEELING [None]
  - MASTICATION DISORDER [None]
  - CHOKING [None]
  - DYSPNOEA [None]
  - CONVULSION [None]
  - LARYNGEAL OEDEMA [None]
